FAERS Safety Report 21129346 (Version 1)
Quarter: 2022Q3

REPORT INFORMATION
  Report Type: Spontaneous
  Country: US (occurrence: US)
  Receive Date: 20220725
  Receipt Date: 20220725
  Transmission Date: 20221027
  Serious: No
  Sender: FDA-Public Use
  Company Number: US-BIOGEN-2022BI01140278

PATIENT
  Sex: Male
  Weight: 85.7 kg

DRUGS (2)
  1. SPINRAZA [Suspect]
     Active Substance: NUSINERSEN
     Indication: Spinal muscular atrophy
     Dosage: LOADING DOSE
     Route: 050
  2. SPINRAZA [Suspect]
     Active Substance: NUSINERSEN
     Dosage: MAINTENANCE DOSE - 12MG/5 ML
     Route: 050
     Dates: start: 2012

REACTIONS (3)
  - Procedural pain [Recovered/Resolved]
  - Fall [Recovered/Resolved]
  - Post lumbar puncture syndrome [Recovered/Resolved]
